FAERS Safety Report 4848392-3 (Version None)
Quarter: 2005Q4

REPORT INFORMATION
  Report Type: 
  Country: None (occurrence: None)
  Receive Date: 20051208
  Receipt Date: 20050927
  Transmission Date: 20060501
  Serious: Yes (Hospitalization, Other)
  Sender: FDA-Public Use
  Company Number: US-MERCK-0509USA04418

PATIENT
  Sex: Male
  Weight: 80 kg

DRUGS (12)
  1. VIOXX [Suspect]
     Route: 048
     Dates: start: 19990715, end: 20040923
  2. PLAVIX [Concomitant]
     Route: 065
  3. OXYCODONE [Concomitant]
     Route: 065
  4. GABAPENTIN [Concomitant]
     Route: 065
  5. ARTRIDOL (BETAMETHASONE (+) INDOMETHACIN (+) METHOCARBAMOL) [Concomitant]
     Route: 065
  6. PREVACID [Concomitant]
     Route: 065
  7. FOLIC ACID [Concomitant]
     Route: 065
  8. INJECTABLE GOLD (UNSPECIFIED) [Concomitant]
     Route: 065
  9. AXOCET (ACETAMINOPHEN (+) BUTALBITAL) [Concomitant]
     Route: 065
  10. PROVENTIL [Concomitant]
     Route: 065
  11. BUTALBITAL [Concomitant]
     Route: 065
  12. METHOCARBAMOL [Concomitant]
     Route: 065

REACTIONS (1)
  - MYOCARDIAL INFARCTION [None]
